FAERS Safety Report 6600302-4 (Version None)
Quarter: 2010Q1

REPORT INFORMATION
  Report Type: 
  Country: None (occurrence: None)
  Receive Date: 20100224
  Receipt Date: 20100216
  Transmission Date: 20100710
  Serious: Yes (Hospitalization)
  Sender: FDA-Public Use
  Company Number: US-BAXTER-2010BH002583

PATIENT
  Age: 73 Year
  Sex: Male

DRUGS (3)
  1. DIANEAL [Suspect]
     Indication: PERITONEAL DIALYSIS
     Route: 033
     Dates: start: 20100121, end: 20100201
  2. DIANEAL [Suspect]
     Route: 033
     Dates: start: 20090101, end: 20100121
  3. DIANEAL [Suspect]
     Indication: PERITONEAL DIALYSIS
     Route: 033
     Dates: start: 20100121, end: 20100201

REACTIONS (3)
  - ABDOMINAL DISTENSION [None]
  - ASTHENIA [None]
  - BLOOD CREATINE INCREASED [None]
